FAERS Safety Report 5725163-7 (Version None)
Quarter: 2008Q2

REPORT INFORMATION
  Report Type: 
  Country: None (occurrence: None)
  Receive Date: 20080501
  Receipt Date: 20080428
  Transmission Date: 20081010
  Serious: Yes (Hospitalization)
  Sender: FDA-Public Use
  Company Number: A0683024A

PATIENT
  Age: 55 Year
  Sex: Male

DRUGS (5)
  1. AVODART [Suspect]
     Dosage: 1CAP PER DAY
     Route: 048
     Dates: start: 20070701
  2. FLOMAX [Concomitant]
  3. UNKNOWN ANTIHYPERTENSIVE AGENT [Concomitant]
  4. UNKNOWN ANTI-DIABETIC MEDICATION [Concomitant]
  5. CARDIAC ANTI-ARRHYTHMIC MEDICATION [Concomitant]

REACTIONS (4)
  - BLOOD THYROID STIMULATING HORMONE INCREASED [None]
  - CHEST PAIN [None]
  - GASTROOESOPHAGEAL REFLUX DISEASE [None]
  - SEMEN VOLUME DECREASED [None]
